FAERS Safety Report 4744485-X (Version None)
Quarter: 2005Q3

REPORT INFORMATION
  Report Type: 
  Country: None (occurrence: None)
  Receive Date: 20050809
  Receipt Date: 20050801
  Transmission Date: 20060218
  Serious: Yes (Other)
  Sender: FDA-Public Use
  Company Number: 200510134BWH

PATIENT
  Age: 80 Year
  Sex: Male

DRUGS (5)
  1. CIPRO IV [Suspect]
     Indication: KNEE ARTHROPLASTY
     Dosage: 400 MG, BID, INTRAVENOUS
     Route: 042
     Dates: start: 20040819, end: 20041130
  2. CIPRO IV [Suspect]
     Indication: POSTOPERATIVE INFECTION
     Dosage: 400 MG, BID, INTRAVENOUS
     Route: 042
     Dates: start: 20040819, end: 20041130
  3. VANCOMYCIN [Suspect]
     Dosage: INTRAVENOUS
     Route: 042
     Dates: start: 20040701
  4. CIPRO [Suspect]
     Indication: KNEE ARTHROPLASTY
     Dosage: 500 MG, BID, ORAL
     Route: 048
     Dates: end: 20050131
  5. CIPRO [Suspect]
     Indication: POSTOPERATIVE INFECTION
     Dosage: 500 MG, BID, ORAL
     Route: 048
     Dates: end: 20050131

REACTIONS (27)
  - ANOREXIA [None]
  - ARRHYTHMIA [None]
  - ASTHENIA [None]
  - BALANCE DISORDER [None]
  - BLINDNESS [None]
  - BRADYCARDIA [None]
  - CATARACT [None]
  - CONFUSIONAL STATE [None]
  - DEAFNESS [None]
  - DEHYDRATION [None]
  - DEPRESSION [None]
  - DIFFICULTY IN WALKING [None]
  - DIZZINESS [None]
  - ELECTROCARDIOGRAM ABNORMAL [None]
  - FATIGUE [None]
  - GASTRIC DISORDER [None]
  - HEAD DISCOMFORT [None]
  - HEADACHE [None]
  - HEART RATE DECREASED [None]
  - HEART RATE INCREASED [None]
  - HYPOTENSION [None]
  - LOSS OF CONSCIOUSNESS [None]
  - MOOD SWINGS [None]
  - NAUSEA [None]
  - SOMNOLENCE [None]
  - TACHYCARDIA [None]
  - VENTRICULAR EXTRASYSTOLES [None]
